FAERS Safety Report 7438693-7 (Version None)
Quarter: 2011Q2

REPORT INFORMATION
  Report Type: 
  Country: None (occurrence: None)
  Receive Date: 20110426
  Receipt Date: 20110413
  Transmission Date: 20111010
  Serious: Yes (Other)
  Sender: FDA-Public Use
  Company Number: SG-BAYER-2011-032201

PATIENT
  Age: 30 Year
  Sex: Female

DRUGS (2)
  1. CLOPIDOGREL [Suspect]
  2. ASPIRIN [Suspect]
     Route: 048

REACTIONS (1)
  - VASCULITIS [None]
